FAERS Safety Report 25752400 (Version 3)
Quarter: 2025Q3

REPORT INFORMATION
  Report Type: Report from Study
  Country: CO (occurrence: CO)
  Receive Date: 20250902
  Receipt Date: 20250930
  Transmission Date: 20251020
  Serious: Yes (Life-Threatening, Other)
  Sender: NOVARTIS
  Company Number: CO-002147023-NVSC2025CO137158

PATIENT
  Sex: Male
  Weight: 66 kg

DRUGS (3)
  1. KISQALI [Suspect]
     Active Substance: RIBOCICLIB SUCCINATE
     Indication: Hormone receptor positive HER2 negative breast cancer
     Dosage: 600 MG, QD
     Route: 048
     Dates: start: 20250722
  2. KISQALI [Suspect]
     Active Substance: RIBOCICLIB SUCCINATE
     Indication: Breast cancer metastatic
     Dosage: 400 MG, QD
     Route: 065
  3. KISQALI [Suspect]
     Active Substance: RIBOCICLIB SUCCINATE
     Dosage: 600 MG, QD
     Route: 048

REACTIONS (12)
  - Feeling abnormal [Unknown]
  - Renal impairment [Unknown]
  - Headache [Recovered/Resolved]
  - Discouragement [Recovered/Resolved]
  - Malaise [Recovered/Resolved]
  - Eating disorder [Recovered/Resolved]
  - Poor quality sleep [Recovered/Resolved]
  - Pain [Unknown]
  - Vomiting [Unknown]
  - Platelet count decreased [Unknown]
  - Hepatic function abnormal [Unknown]
  - Decreased immune responsiveness [Unknown]
